FAERS Safety Report 4901530-6 (Version None)
Quarter: 2006Q1

REPORT INFORMATION
  Report Type: 
  Country: None (occurrence: None)
  Receive Date: 20060206
  Receipt Date: 20041223
  Transmission Date: 20060701
  Serious: No
  Sender: FDA-Public Use
  Company Number: US-BRISTOL-MYERS SQUIBB COMPANY-12806733

PATIENT
  Age: 69 Year
  Sex: Female

DRUGS (5)
  1. CARBOPLATIN [Suspect]
     Indication: LUNG CANCER METASTATIC
     Route: 042
     Dates: start: 20040605, end: 20041011
  2. TAXOL [Suspect]
     Indication: LUNG CANCER METASTATIC
     Route: 042
     Dates: start: 20040605, end: 20041011
  3. DECADRON PHOSPHATE [Concomitant]
     Route: 042
  4. KYTRIL [Concomitant]
     Route: 042
  5. BENADRYL [Concomitant]
     Route: 042

REACTIONS (3)
  - ANXIETY [None]
  - DYSPNOEA [None]
  - ERYTHEMA [None]
